FAERS Safety Report 21906620 (Version 2)
Quarter: 2023Q1

REPORT INFORMATION
  Report Type: Spontaneous
  Country: US (occurrence: US)
  Receive Date: 20230125
  Receipt Date: 20230222
  Transmission Date: 20230417
  Serious: No
  Sender: FDA-Public Use
  Company Number: US-GLAXOSMITHKLINE-USCH2023003088

PATIENT
  Sex: Female

DRUGS (3)
  1. NICORETTE WHITE ICE MINT [Suspect]
     Active Substance: NICOTINE
     Indication: Smoking cessation therapy
     Dosage: UNK
  2. NICORETTE WHITE ICE MINT [Suspect]
     Active Substance: NICOTINE
     Dosage: UNK
  3. NICORETTE WHITE ICE MINT [Suspect]
     Active Substance: NICOTINE
     Indication: Smoking cessation therapy
     Dosage: UNK

REACTIONS (2)
  - Nicotine dependence [Unknown]
  - Product complaint [Unknown]
